FAERS Safety Report 23254185 (Version 2)
Quarter: 2024Q1

REPORT INFORMATION
  Report Type: Spontaneous
  Country: NL (occurrence: NL)
  Receive Date: 20231202
  Receipt Date: 20240216
  Transmission Date: 20240409
  Serious: Yes (Death, Congenital Anomaly, Other)
  Sender: FDA-Public Use
  Company Number: None

PATIENT

DRUGS (1)
  1. ADALIMUMAB [Suspect]
     Active Substance: ADALIMUMAB\ISOPROPYL ALCOHOL
     Indication: Maternal exposure timing unspecified
     Route: 064

REACTIONS (7)
  - Foetal death [Fatal]
  - Foetal growth restriction [Recovered/Resolved]
  - Congenital cystic kidney disease [Recovered/Resolved]
  - Aberrant aortic arch [Recovered/Resolved]
  - Congenital cerebellar agenesis [Recovered/Resolved]
  - Gastrointestinal disorder congenital [Recovered/Resolved]
  - Foetal exposure during pregnancy [Unknown]
